FAERS Safety Report 6493951-8 (Version None)
Quarter: 2009Q4

REPORT INFORMATION
  Report Type: 
  Country: None (occurrence: None)
  Receive Date: 20091214
  Receipt Date: 20081201
  Transmission Date: 20100525
  Serious: No
  Sender: FDA-Public Use
  Company Number: US-BRISTOL-MYERS SQUIBB COMPANY-14424535

PATIENT
  Age: 67 Year
  Sex: Female
  Weight: 58 kg

DRUGS (4)
  1. ABILIFY [Suspect]
     Indication: ANXIETY
     Dosage: 1DOSAGE FORM=0.5TAB
     Dates: start: 20081112, end: 20080101
  2. ABILIFY [Suspect]
     Indication: DEPRESSION
     Dosage: 1DOSAGE FORM=0.5TAB
     Dates: start: 20081112, end: 20080101
  3. ABILIFY [Suspect]
     Indication: PANIC ATTACK
     Dosage: 1DOSAGE FORM=0.5TAB
     Dates: start: 20081112, end: 20080101
  4. ALEVE (CAPLET) [Concomitant]

REACTIONS (7)
  - AGITATION [None]
  - ANXIETY [None]
  - DEPRESSION [None]
  - INSOMNIA [None]
  - IRRITABILITY [None]
  - PANIC ATTACK [None]
  - SUICIDAL IDEATION [None]
